FAERS Safety Report 6421333-3 (Version None)
Quarter: 2009Q4

REPORT INFORMATION
  Report Type: 
  Country: None (occurrence: None)
  Receive Date: 20091030
  Receipt Date: 20091019
  Transmission Date: 20100525
  Serious: Yes (Other)
  Sender: FDA-Public Use
  Company Number: PHHY2009AU41368

PATIENT
  Sex: Female

DRUGS (6)
  1. ESTRADERM [Suspect]
     Indication: HORMONE REPLACEMENT THERAPY
     Dosage: 1 TWICE WEEKLY
     Route: 062
     Dates: start: 20090720, end: 20090911
  2. KARVEA [Concomitant]
     Dosage: 75 MG PER DAY
     Dates: start: 20070306
  3. LEVOTHYROXINE SODIUM [Concomitant]
     Dosage: 150 UG PER DAY
     Dates: start: 20070306
  4. RANITIDINE [Concomitant]
     Dosage: 150 MG, PRN
  5. TEMAZEPAM [Concomitant]
     Dosage: 10 MG, PRN AT NIGHT
  6. OROXINE [Concomitant]
     Dosage: 1 DF, UNK
     Dates: start: 20070306

REACTIONS (4)
  - APPLICATION SITE ERYTHEMA [None]
  - APPLICATION SITE PRURITUS [None]
  - APPLICATION SITE RASH [None]
  - APPLICATION SITE URTICARIA [None]
